FAERS Safety Report 6305375-4 (Version None)
Quarter: 2009Q3

REPORT INFORMATION
  Report Type: 
  Country: None (occurrence: None)
  Receive Date: 20090810
  Receipt Date: 20090810
  Transmission Date: 20100115
  Serious: Yes (Other)
  Sender: FDA-Public Use
  Company Number: None

PATIENT
  Sex: Male
  Weight: 24.4942 kg

DRUGS (2)
  1. METHYLPHENIDATE ER [Suspect]
     Indication: ATTENTION DEFICIT/HYPERACTIVITY DISORDER
     Dosage: 20 MG ONCE DAILY ORAL
     Route: 048
     Dates: start: 20090528, end: 20090804
  2. ADDERALL 10 [Suspect]
     Dosage: 10 MG BID ORAL
     Route: 048
     Dates: start: 20080408, end: 20090528

REACTIONS (3)
  - AGITATION [None]
  - ATTENTION DEFICIT/HYPERACTIVITY DISORDER [None]
  - PRODUCT SUBSTITUTION ISSUE [None]
